FAERS Safety Report 6517666-2 (Version None)
Quarter: 2009Q4

REPORT INFORMATION
  Report Type: 
  Country: None (occurrence: None)
  Receive Date: 20091224
  Receipt Date: 20091216
  Transmission Date: 20100525
  Serious: Yes (Hospitalization)
  Sender: FDA-Public Use
  Company Number: JP-ASTRAZENECA-2009SE32544

PATIENT
  Age: 74 Year
  Sex: Female
  Weight: 39 kg

DRUGS (5)
  1. IRESSA [Suspect]
     Indication: LUNG ADENOCARCINOMA
     Route: 048
     Dates: start: 20070101
  2. OXYCODONE HCL [Concomitant]
     Dosage: DOSE UNKNOWN
     Route: 065
  3. CARBAMAZEPINE [Concomitant]
     Indication: PAIN
     Dosage: DOSE UNKNOWN
     Route: 065
  4. MEXILETINE HYDROCHLORIDE [Concomitant]
     Indication: PAIN
     Dosage: DOSE UNKNOWN
     Route: 065
  5. FENTANYL-100 [Concomitant]
     Dosage: DOSE UNKNOWN
     Route: 065

REACTIONS (4)
  - DIARRHOEA [None]
  - LIVER DISORDER [None]
  - PYREXIA [None]
  - RASH GENERALISED [None]
